FAERS Safety Report 8793394 (Version 1)
Quarter: 2012Q4

REPORT INFORMATION
  Report Type: 
  Country: VE (occurrence: VE)
  Receive Date: 20120918
  Receipt Date: 20120918
  Transmission Date: 20130627
  Serious: Yes (Other)
  Sender: FDA-Public Use
  Company Number: PHHY2012VE080542

PATIENT
  Age: 69 Year
  Sex: Female

DRUGS (5)
  1. ACLASTA [Suspect]
     Indication: OSTEOPOROSIS
     Dosage: 5 mg, intravenous
     Route: 042
     Dates: start: 20120830
  2. DIOVAN [Concomitant]
     Indication: HYPERTENSION
     Dosage: 1 DF,
     Dates: start: 2009
  3. LERCANIDIPINE [Concomitant]
     Indication: HYPERTENSION
     Dosage: 1 DF,
     Dates: start: 2009
  4. HYDROCHLOROTHIAZIDE [Concomitant]
     Dosage: 1 DF,
     Dates: start: 2009
  5. ASPIRINA [Concomitant]
     Dosage: 1 DF,
     Dates: start: 2009

REACTIONS (10)
  - Eye movement disorder [Recovered/Resolved]
  - Visual impairment [Recovered/Resolved]
  - Dehydration [Recovered/Resolved]
  - Influenza like illness [Recovered/Resolved]
  - Headache [Recovered/Resolved]
  - Nausea [Recovered/Resolved]
  - Dizziness [Recovered/Resolved]
  - Vomiting [Recovered/Resolved]
  - Asthenia [Recovered/Resolved]
  - Vertigo [Recovered/Resolved]
